FAERS Safety Report 5951998-1 (Version None)
Quarter: 2008Q4

REPORT INFORMATION
  Report Type: 
  Country: None (occurrence: None)
  Receive Date: 20081113
  Receipt Date: 20071031
  Transmission Date: 20090506
  Serious: No
  Sender: FDA-Public Use
  Company Number: A0690771A

PATIENT
  Age: 74 Year
  Sex: Female

DRUGS (10)
  1. CARVEDILOL [Suspect]
     Indication: HYPERTENSION
     Dosage: 25MG TWICE PER DAY
     Route: 048
     Dates: start: 20071003
  2. GEMFIBROZIL [Concomitant]
  3. OXYBUTYN [Concomitant]
  4. PRAVASTATIN [Concomitant]
  5. LISINOPRIL [Concomitant]
  6. SYNTHROID [Concomitant]
  7. METOCLOPRAMIDE [Concomitant]
  8. ALPRAZOLAM [Concomitant]
  9. CENTRUM [Concomitant]
  10. PRILOSEC [Concomitant]

REACTIONS (1)
  - DIZZINESS [None]
